FAERS Safety Report 23850452 (Version 2)
Quarter: 2024Q3

REPORT INFORMATION
  Report Type: Spontaneous
  Country: US (occurrence: US)
  Receive Date: 20240513
  Receipt Date: 20240703
  Transmission Date: 20241017
  Serious: No
  Sender: JOHNSON AND JOHNSON
  Company Number: US-JNJFOC-20240514268

PATIENT
  Age: 71 Year
  Sex: Female

DRUGS (3)
  1. ZYRTEC [Suspect]
     Active Substance: CETIRIZINE HYDROCHLORIDE
     Indication: Multiple allergies
     Route: 048
     Dates: start: 20240423, end: 20240424
  2. AMLODIPINE [Concomitant]
     Active Substance: AMLODIPINE BESYLATE
     Indication: Hypertension
     Route: 065
  3. ARMOUR THYROID [Concomitant]
     Active Substance: THYROID, PORCINE
     Indication: Hypothyroidism
     Route: 065

REACTIONS (6)
  - Headache [Unknown]
  - Somnolence [Recovering/Resolving]
  - Fatigue [Recovering/Resolving]
  - Dizziness [Unknown]
  - Nausea [Unknown]
  - Expired product administered [Unknown]

NARRATIVE: CASE EVENT DATE: 20240401
